FAERS Safety Report 25999182 (Version 1)
Quarter: 2025Q4

REPORT INFORMATION
  Report Type: Spontaneous
  Country: CN (occurrence: CN)
  Receive Date: 20251105
  Receipt Date: 20251105
  Transmission Date: 20260117
  Serious: Yes (Hospitalization)
  Sender: ACCORD
  Company Number: None

PATIENT
  Age: 49 Year
  Sex: Female
  Weight: 59 kg

DRUGS (3)
  1. TRASTUZUMAB [Suspect]
     Active Substance: TRASTUZUMAB
     Indication: Breast cancer metastatic
     Dosage: STRENGTH: 150 MILLIGRAM?360 MILLIGRAM, QD
     Route: 042
     Dates: start: 20251006, end: 20251006
  2. DOCETAXEL [Suspect]
     Active Substance: DOCETAXEL
     Indication: Breast cancer metastatic
     Dosage: 125 MILLIGRAM, QD
     Route: 042
     Dates: start: 20251003, end: 20251003
  3. PYROTINIB [Suspect]
     Active Substance: PYROTINIB
     Indication: Breast cancer metastatic
     Dosage: 240 MILLIGRAM, QD
     Route: 048
     Dates: start: 20251003, end: 20251008

REACTIONS (1)
  - Myelosuppression [Recovering/Resolving]

NARRATIVE: CASE EVENT DATE: 20251010
